FAERS Safety Report 16818010 (Version 1)
Quarter: 2019Q3

REPORT INFORMATION
  Report Type: Spontaneous
  Country: US (occurrence: US)
  Receive Date: 20190917
  Receipt Date: 20190917
  Transmission Date: 20191005
  Serious: No
  Sender: FDA-Public Use
  Company Number: US-TEVA-2019-US-1109669

PATIENT
  Sex: Female

DRUGS (1)
  1. SOLIFENACIN SUCCINATE 5MG [Suspect]
     Active Substance: SOLIFENACIN SUCCINATE
     Indication: POLLAKIURIA
     Route: 065
     Dates: start: 201908

REACTIONS (1)
  - Drug ineffective [Unknown]
